FAERS Safety Report 6638148-3 (Version None)
Quarter: 2010Q1

REPORT INFORMATION
  Report Type: 
  Country: None (occurrence: None)
  Receive Date: 20100315
  Receipt Date: 20100315
  Transmission Date: 20100710
  Serious: Yes (Hospitalization)
  Sender: FDA-Public Use
  Company Number: None

PATIENT
  Sex: Male
  Weight: 67.3592 kg

DRUGS (2)
  1. IXABEPILONE [Suspect]
     Indication: COLORECTAL CANCER METASTATIC
     Dosage: 22 MG
  2. SUNITINIB 37.5 MG/DOSE [Suspect]

REACTIONS (1)
  - SMALL INTESTINAL OBSTRUCTION [None]
